FAERS Safety Report 6136302-0 (Version None)
Quarter: 2009Q1

REPORT INFORMATION
  Report Type: 
  Country: None (occurrence: None)
  Receive Date: 20090330
  Receipt Date: 20090326
  Transmission Date: 20090719
  Serious: Yes (Hospitalization)
  Sender: FDA-Public Use
  Company Number: CH-BRISTOL-MYERS SQUIBB COMPANY-14537443

PATIENT
  Age: 75 Year
  Sex: Female
  Weight: 56 kg

DRUGS (4)
  1. ORENCIA [Suspect]
     Indication: RHEUMATOID ARTHRITIS
     Dosage: INFUSION
     Route: 042
     Dates: start: 20090119
  2. ARTHROTEC [Concomitant]
     Route: 048
  3. ARAVA [Concomitant]
     Route: 048
  4. APROVEL [Concomitant]
     Route: 048

REACTIONS (1)
  - HYPERTENSIVE CRISIS [None]
